FAERS Safety Report 5042562-X (Version None)
Quarter: 2006Q2

REPORT INFORMATION
  Report Type: 
  Country: None (occurrence: None)
  Receive Date: 20060627
  Receipt Date: 20060614
  Transmission Date: 20061013
  Serious: Yes (Other)
  Sender: FDA-Public Use
  Company Number: 2006077455

PATIENT
  Age: 96 Year
  Sex: Female

DRUGS (2)
  1. SULPERAZON (SULBACTAM, CEFOPERAZONE) [Suspect]
     Indication: CHOLECYSTITIS
     Dosage: SEE IMAGE
     Route: 042
     Dates: start: 20060602, end: 20060602
  2. SULPERAZON (SULBACTAM, CEFOPERAZONE) [Suspect]
     Indication: CHOLECYSTITIS
     Dosage: SEE IMAGE
     Route: 042
     Dates: start: 20060603, end: 20060612

REACTIONS (1)
  - PROTHROMBIN TIME PROLONGED [None]
